FAERS Safety Report 9346040 (Version 1)
Quarter: 2013Q2

REPORT INFORMATION
  Report Type: Spontaneous
  Country: DE (occurrence: DE)
  Receive Date: 20130613
  Receipt Date: 20130613
  Transmission Date: 20140414
  Serious: Yes (Hospitalization, Disabling)
  Sender: FDA-Public Use
  Company Number: DE-ELI_LILLY_AND_COMPANY-DE201306000679

PATIENT
  Age: 72 Year
  Sex: Male
  Weight: 60 kg

DRUGS (5)
  1. ZYPREXA [Suspect]
     Indication: DEPRESSION
     Dosage: 5 MG, QD
     Dates: start: 20130302, end: 20130307
  2. LYRICA [Concomitant]
     Indication: DEPRESSION
     Dosage: 75 MG, BID
     Route: 048
     Dates: start: 20130228, end: 20130307
  3. FOLSAN [Concomitant]
     Dosage: 5 MG, QD
     Dates: start: 20130125
  4. TAMSULOSIN [Concomitant]
     Indication: BENIGN PROSTATIC HYPERPLASIA
     Dosage: 0.4 MG, QD
     Dates: start: 201108
  5. ASPIRIN [Concomitant]
     Indication: CORONARY ARTERY DISEASE
     Dosage: 100 DF, QD

REACTIONS (1)
  - Retinal detachment [Unknown]
